FAERS Safety Report 9498434 (Version 2)
Quarter: 2013Q4

REPORT INFORMATION
  Report Type: Spontaneous
  Country: GB (occurrence: GB)
  Receive Date: 20130904
  Receipt Date: 20131206
  Transmission Date: 20140711
  Serious: Yes (Other)
  Sender: FDA-Public Use
  Company Number: GB-GLAXOSMITHKLINE-B0917389A

PATIENT
  Age: 70 Year
  Sex: Female
  Weight: 57.2 kg

DRUGS (3)
  1. TYVERB [Suspect]
     Indication: BREAST CANCER
     Dosage: 1250MG PER DAY
     Dates: start: 201306, end: 20130715
  2. CODEINE PHOSPHATE [Concomitant]
     Indication: PAIN
  3. CAPECITABINE [Concomitant]

REACTIONS (15)
  - Renal impairment [Unknown]
  - Rash macular [Recovered/Resolved]
  - Pruritus [Recovering/Resolving]
  - Skin wrinkling [Not Recovered/Not Resolved]
  - Skin exfoliation [Not Recovered/Not Resolved]
  - Generalised erythema [Recovering/Resolving]
  - Constipation [Unknown]
  - Nausea [Unknown]
  - Fatigue [Unknown]
  - Somnolence [Unknown]
  - Activities of daily living impaired [Unknown]
  - Dehydration [Not Recovered/Not Resolved]
  - Thirst [Not Recovered/Not Resolved]
  - Toxicity to various agents [Unknown]
  - Dry mouth [Unknown]
